FAERS Safety Report 23691543 (Version 1)
Quarter: 2024Q2

REPORT INFORMATION
  Report Type: Report from Study
  Country: CA (occurrence: CA)
  Receive Date: 20240401
  Receipt Date: 20240401
  Transmission Date: 20240716
  Serious: Yes (Death, Hospitalization, Other)
  Sender: FDA-Public Use
  Company Number: CA-TAKEDA-2024TUS023273

PATIENT
  Sex: Female

DRUGS (1)
  1. VEDOLIZUMAB [Suspect]
     Active Substance: VEDOLIZUMAB
     Indication: Crohn^s disease
     Dosage: 300 MILLIGRAM
     Route: 042
     Dates: start: 20240214, end: 20240214

REACTIONS (5)
  - Failure to thrive [Fatal]
  - Pancreatic carcinoma [Unknown]
  - Crohn^s disease [None]
  - Blood albumin decreased [None]
  - Oxygen saturation decreased [None]
